FAERS Safety Report 23214618 (Version 2)
Quarter: 2023Q4

REPORT INFORMATION
  Report Type: Spontaneous
  Country: None (occurrence: US)
  Receive Date: 20231121
  Receipt Date: 20231129
  Transmission Date: 20240109
  Serious: No
  Sender: FDA-Public Use
  Company Number: US-Dermavant-000864

PATIENT
  Age: 41 Year

DRUGS (3)
  1. TAPINAROF [Suspect]
     Active Substance: TAPINAROF
     Indication: Psoriasis
     Dosage: APPLIED TO GENITAL AREA/ MEDIAL THIGHS
     Route: 061
  2. PROTOPIC [Concomitant]
     Active Substance: TACROLIMUS
  3. topical steroid [Concomitant]

REACTIONS (4)
  - Pain in extremity [Unknown]
  - Muscular weakness [Unknown]
  - Chills [Unknown]
  - Nausea [Unknown]
